FAERS Safety Report 16689352 (Version 2)
Quarter: 2019Q3

REPORT INFORMATION
  Report Type: Spontaneous
  Country: BR (occurrence: BR)
  Receive Date: 20190809
  Receipt Date: 20190903
  Transmission Date: 20191004
  Serious: Yes (Death, Hospitalization)
  Sender: FDA-Public Use
  Company Number: BR-CELGENEUS-BRA-20190802254

PATIENT
  Age: 78 Year
  Sex: Male

DRUGS (1)
  1. VIDAZA [Suspect]
     Active Substance: AZACITIDINE
     Indication: MYELODYSPLASTIC SYNDROME
     Dosage: 130 MILLIGRAM
     Route: 065
     Dates: end: 20190711

REACTIONS (9)
  - Contusion [Unknown]
  - Full blood count decreased [Unknown]
  - Platelet count decreased [Unknown]
  - Myelodysplastic syndrome [Unknown]
  - Death [Fatal]
  - Fatigue [Unknown]
  - Drug ineffective [Unknown]
  - Respiratory failure [Unknown]
  - Haematoma [Unknown]

NARRATIVE: CASE EVENT DATE: 2019
